FAERS Safety Report 4970807-0 (Version None)
Quarter: 2006Q2

REPORT INFORMATION
  Report Type: 
  Country: None (occurrence: None)
  Receive Date: 20060412
  Receipt Date: 20060405
  Transmission Date: 20061013
  Serious: Yes (Life-Threatening, Hospitalization)
  Sender: FDA-Public Use
  Company Number: GB-ROCHE-443421

PATIENT
  Age: 43 Year
  Sex: Female
  Weight: 80 kg

DRUGS (6)
  1. PEGASYS [Suspect]
     Indication: HEPATITIS C
     Route: 058
     Dates: start: 20060127, end: 20060217
  2. COPEGUS [Suspect]
     Indication: HEPATITIS C
     Dosage: 400 MG EACH MORNING AND 600 MG EACH NIGHT.
     Route: 048
     Dates: start: 20060127, end: 20060217
  3. VENLAFAXINE [Concomitant]
     Indication: DEPRESSION
     Route: 048
  4. VALPROATE SODIUM [Concomitant]
     Indication: EPILEPSY
     Route: 048
  5. METHADONE [Concomitant]
     Indication: DRUG DEPENDENCE
     Route: 048
  6. SPIRONOLACTONE [Concomitant]
     Indication: ASCITES
     Route: 048

REACTIONS (4)
  - DYSPNOEA [None]
  - HAEMOPTYSIS [None]
  - PNEUMONIA [None]
  - PRODUCTIVE COUGH [None]
